FAERS Safety Report 7908481-3 (Version None)
Quarter: 2011Q4

REPORT INFORMATION
  Report Type: 
  Country: None (occurrence: None)
  Receive Date: 20111111
  Receipt Date: 20111031
  Transmission Date: 20120403
  Serious: No
  Sender: FDA-Public Use
  Company Number: US-JNJFOC-20110712429

PATIENT
  Sex: Female
  Weight: 65.32 kg

DRUGS (5)
  1. GABAPENTIN [Concomitant]
     Indication: NERVE INJURY
     Route: 048
     Dates: start: 20090101
  2. SOMA [Concomitant]
     Indication: PAIN
     Dosage: AS NEEDED EVERY 4-6 HR FOR PAIN
     Route: 048
     Dates: start: 20080101
  3. DURAGESIC-100 [Suspect]
     Indication: PAIN
     Route: 062
     Dates: start: 20101101, end: 20110101
  4. XANAX [Concomitant]
     Indication: NEURALGIA
     Dosage: AS NEEDED FOR 4-6 HR FOR PAIN.
     Route: 048
     Dates: start: 20090101
  5. OXYCODONE HCL AND ACETAMINOPHEN [Concomitant]
     Indication: PAIN
     Dosage: ONE OR TWO FOR EVERY 4-6HR AS NEEDED FOR PAIN.
     Route: 048
     Dates: start: 20100101

REACTIONS (3)
  - PRODUCT QUALITY ISSUE [None]
  - WRONG TECHNIQUE IN DRUG USAGE PROCESS [None]
  - PAIN [None]
